FAERS Safety Report 12239818 (Version 3)
Quarter: 2018Q2

REPORT INFORMATION
  Report Type: Spontaneous
  Country: US (occurrence: US)
  Receive Date: 20160405
  Receipt Date: 20180403
  Transmission Date: 20180711
  Serious: No
  Sender: FDA-Public Use
  Company Number: US-ROCHE-1697173

PATIENT
  Age: 67 Year
  Sex: Male

DRUGS (10)
  1. ERIVEDGE [Suspect]
     Active Substance: VISMODEGIB
     Dosage: TAKE ONE CAPSULE BY MOUTH EVERY DAY
     Route: 048
     Dates: start: 20160628
  2. MECLIZINE HCL [Concomitant]
     Active Substance: MECLIZINE HYDROCHLORIDE
  3. ERIVEDGE [Suspect]
     Active Substance: VISMODEGIB
     Indication: OESOPHAGEAL CARCINOMA
     Dosage: TAKE ONE CAPSULE BY MOUTH EVERY DAY
     Route: 048
     Dates: start: 201602
  4. ERIVEDGE [Suspect]
     Active Substance: VISMODEGIB
     Indication: BASAL CELL CARCINOMA
     Route: 048
     Dates: start: 20151224
  5. B12-ACTIVE [Concomitant]
  6. ERIVEDGE [Suspect]
     Active Substance: VISMODEGIB
     Dosage: USE AS DIRECTED BY PHYSICIAN
     Route: 048
     Dates: start: 20160629
  7. ONDANSETRON HCL [Concomitant]
     Active Substance: ONDANSETRON HYDROCHLORIDE
  8. MECLIZINE [Concomitant]
     Active Substance: MECLIZINE HYDROCHLORIDE
     Route: 065
  9. LEVOTHYROXINE SODIUM. [Concomitant]
     Active Substance: LEVOTHYROXINE SODIUM
  10. IMODIUM A-D [Concomitant]
     Active Substance: LOPERAMIDE HYDROCHLORIDE

REACTIONS (4)
  - Diarrhoea [Unknown]
  - Constipation [Unknown]
  - Diarrhoea [Not Recovered/Not Resolved]
  - Ill-defined disorder [Unknown]

NARRATIVE: CASE EVENT DATE: 201602
